FAERS Safety Report 18630412 (Version 1)
Quarter: 2020Q4

REPORT INFORMATION
  Report Type: Spontaneous
  Country: SG (occurrence: SG)
  Receive Date: 20201218
  Receipt Date: 20201218
  Transmission Date: 20210114
  Serious: Yes (Hospitalization)
  Sender: FDA-Public Use
  Company Number: SG-NOVAST LABORATORIES LTD.-2020NOV000346

PATIENT
  Age: 23 Year
  Sex: Female

DRUGS (2)
  1. QUETIAPINE. [Suspect]
     Active Substance: QUETIAPINE
     Dosage: 600 MILLIGRAM, QD
     Route: 065
  2. QUETIAPINE. [Suspect]
     Active Substance: QUETIAPINE
     Indication: SCHIZOPHRENIFORM DISORDER
     Dosage: 200 MILLIGRAM, QD
     Route: 065

REACTIONS (1)
  - Relapsing fever [Recovered/Resolved]
